FAERS Safety Report 8142537-8 (Version None)
Quarter: 2012Q1

REPORT INFORMATION
  Report Type: 
  Country: None (occurrence: None)
  Receive Date: 20120216
  Receipt Date: 20120214
  Transmission Date: 20120608
  Serious: Yes (Hospitalization)
  Sender: FDA-Public Use
  Company Number: FR-EISAI INC-E2090-01901-SPO-FR

PATIENT
  Sex: Male

DRUGS (5)
  1. ZONEGRAN [Suspect]
     Route: 048
     Dates: start: 20111118, end: 20111222
  2. LAMICTAL [Concomitant]
  3. VIMPAT [Concomitant]
     Route: 048
  4. VIMPAT [Concomitant]
     Route: 048
  5. ZONEGRAN [Suspect]
     Indication: EPILEPSY
     Route: 048
     Dates: start: 20111027, end: 20111117

REACTIONS (4)
  - DEPRESSION [None]
  - AFFECTIVE DISORDER [None]
  - NEUTROPENIA [None]
  - SUICIDAL IDEATION [None]
